FAERS Safety Report 7635352-2 (Version None)
Quarter: 2011Q3

REPORT INFORMATION
  Report Type: 
  Country: None (occurrence: None)
  Receive Date: 20110726
  Receipt Date: 20100625
  Transmission Date: 20111222
  Serious: No
  Sender: FDA-Public Use
  Company Number: US-GLAXOSMITHKLINE-A0867217A

PATIENT
  Age: 57 Year
  Sex: Female

DRUGS (5)
  1. EXTINA [Suspect]
     Indication: PSORIASIS
     Route: 061
     Dates: start: 20100617
  2. M.V.I. [Concomitant]
  3. FLAX SEED OIL [Concomitant]
  4. CALCIUM ACETATE [Concomitant]
  5. FOSAMAX [Concomitant]

REACTIONS (1)
  - DRUG INEFFECTIVE [None]
